FAERS Safety Report 8602406 (Version 2)
Quarter: 2013Q1

REPORT INFORMATION
  Report Type: Report from Study
  Country: JP (occurrence: JP)
  Receive Date: 20120607
  Receipt Date: 20130212
  Transmission Date: 20140127
  Serious: Yes (Life-Threatening, Hospitalization)
  Sender: FDA-Public Use
  Company Number: JP-BAYER-2012-053576

PATIENT
  Age: 73 Year
  Sex: Male

DRUGS (15)
  1. ACARBOSE [Suspect]
     Indication: DIABETES MELLITUS
     Dosage: 50 MG, TID
     Route: 048
     Dates: start: 20101207
  2. AMARYL [Concomitant]
     Indication: DIABETES MELLITUS
     Dosage: DAILY DOSE 3.5 MG
     Route: 048
     Dates: end: 20110325
  3. AMARYL [Concomitant]
     Indication: DIABETES MELLITUS
     Dosage: DAILY DOSE 4 MG
     Route: 048
     Dates: start: 20110325, end: 20110511
  4. AMARYL [Concomitant]
     Indication: DIABETES MELLITUS
     Dosage: DAILY DOSE 2 MG
     Route: 048
     Dates: start: 20110511
  5. ACTOS [Suspect]
     Indication: DIABETES MELLITUS
     Dosage: DAILY DOSE 30 MG
     Route: 048
     Dates: end: 20110215
  6. LANTUS [Concomitant]
     Indication: DIABETES MELLITUS
     Dosage: DAILY DOSE 6 U
     Dates: start: 20110511
  7. ZYLORIC [Concomitant]
     Dosage: DAILY DOSE 100 MG
     Route: 048
     Dates: start: 20110412
  8. CILOSTAZOL [Concomitant]
     Dosage: DAILY DOSE 100 MG
     Route: 048
  9. RANITIDINE [Concomitant]
     Dosage: DAILY DOSE 150 MG
     Route: 048
  10. IRBESARTAN [Concomitant]
     Dosage: DAILY DOSE 100 MG
     Route: 048
  11. LASIX [Concomitant]
     Dosage: 40 MG, QD
     Route: 048
     Dates: start: 20110311, end: 20110410
  12. LASIX [Concomitant]
     Dosage: DAILY DOSE 20 MG
     Route: 048
     Dates: start: 20110411
  13. ARTIST [Concomitant]
     Dosage: DAILY DOSE 7.5 MG
     Route: 048
     Dates: start: 20110311
  14. PRAVASTATIN SODIUM [Concomitant]
     Dosage: DAILY DOSE 10 MG
     Route: 048
  15. ADALAT CR [Concomitant]
     Dosage: DAILY DOSE 20 MG
     Route: 048

REACTIONS (1)
  - Cardiac failure congestive [Recovered/Resolved]
